FAERS Safety Report 11880523 (Version 1)
Quarter: 2015Q4

REPORT INFORMATION
  Report Type: Spontaneous
  Country: CN (occurrence: CN)
  Receive Date: 20151230
  Receipt Date: 20151230
  Transmission Date: 20160305
  Serious: Yes (Hospitalization, Other)
  Sender: FDA-Public Use
  Company Number: CN-GLAXOSMITHKLINE-CN2015GSK181688

PATIENT
  Age: 19 Year
  Sex: Female

DRUGS (3)
  1. LAMOTRIGINE. [Suspect]
     Active Substance: LAMOTRIGINE
     Indication: EPILEPSY
     Dosage: 12.5 MG, BID
  2. VALPROATE SODIUM. [Concomitant]
     Active Substance: VALPROATE SODIUM
     Indication: EPILEPSY
  3. LAMOTRIGINE. [Suspect]
     Active Substance: LAMOTRIGINE
     Dosage: 25 MG, BID

REACTIONS (12)
  - Lymphadenitis [Unknown]
  - Type IV hypersensitivity reaction [Unknown]
  - Rash erythematous [Unknown]
  - Swelling [Unknown]
  - Lymphadenopathy [Unknown]
  - Condition aggravated [Unknown]
  - Nikolsky^s sign [Unknown]
  - Pruritus [Unknown]
  - Eyelid erosion [Unknown]
  - Erythema multiforme [Recovered/Resolved]
  - Pyrexia [Unknown]
  - Stevens-Johnson syndrome [Unknown]

NARRATIVE: CASE EVENT DATE: 20130930
